FAERS Safety Report 25231834 (Version 2)
Quarter: 2025Q2

REPORT INFORMATION
  Report Type: Spontaneous
  Country: FR (occurrence: FR)
  Receive Date: 20250423
  Receipt Date: 20250430
  Transmission Date: 20250717
  Serious: Yes (Hospitalization)
  Sender: MYLAN
  Company Number: None

PATIENT
  Age: 70 Year
  Sex: Female
  Weight: 75 kg

DRUGS (8)
  1. ROPIVACAINE [4]
     Active Substance: ROPIVACAINE
     Indication: Neuromuscular blocking therapy
  2. ROPIVACAINE [4]
     Active Substance: ROPIVACAINE
     Route: 065
  3. ROPIVACAINE [4]
     Active Substance: ROPIVACAINE
     Route: 065
  4. ROPIVACAINE [4]
     Active Substance: ROPIVACAINE
  5. CHLORHEXIDINE GLUCONATE [Suspect]
     Active Substance: CHLORHEXIDINE GLUCONATE
     Indication: Product used for unknown indication
     Dates: start: 20250326, end: 20250326
  6. CHLORHEXIDINE GLUCONATE [Suspect]
     Active Substance: CHLORHEXIDINE GLUCONATE
     Route: 030
     Dates: start: 20250326, end: 20250326
  7. CHLORHEXIDINE GLUCONATE [Suspect]
     Active Substance: CHLORHEXIDINE GLUCONATE
     Route: 030
     Dates: start: 20250326, end: 20250326
  8. CHLORHEXIDINE GLUCONATE [Suspect]
     Active Substance: CHLORHEXIDINE GLUCONATE
     Dates: start: 20250326, end: 20250326

REACTIONS (9)
  - Hypotonia [Recovering/Resolving]
  - Mobility decreased [Not Recovered/Not Resolved]
  - Hypoaesthesia [Recovering/Resolving]
  - Product administration error [Recovered/Resolved]
  - Wrong product administered [Unknown]
  - Wrong route [Recovered/Resolved]
  - Nervous system disorder [Recovering/Resolving]
  - Dyspnoea [Not Recovered/Not Resolved]
  - Incorrect route of product administration [Unknown]

NARRATIVE: CASE EVENT DATE: 20250326
